FAERS Safety Report 4870263-7 (Version None)
Quarter: 2005Q4

REPORT INFORMATION
  Report Type: 
  Country: None (occurrence: None)
  Receive Date: 20051228
  Receipt Date: 20051220
  Transmission Date: 20060501
  Serious: Yes (Other)
  Sender: FDA-Public Use
  Company Number: 2005-12-0509

PATIENT
  Age: 24 Year
  Sex: Female

DRUGS (1)
  1. CLARITIN [Suspect]
     Dosage: 10 MG ORAL
     Route: 048
     Dates: start: 20040201, end: 20040501

REACTIONS (1)
  - LIVER DISORDER [None]
